FAERS Safety Report 5453817-9 (Version None)
Quarter: 2007Q3

REPORT INFORMATION
  Report Type: 
  Country: None (occurrence: None)
  Receive Date: 20070917
  Receipt Date: 20070913
  Transmission Date: 20080115
  Serious: Yes (Other)
  Sender: FDA-Public Use
  Company Number: A0677376A

PATIENT
  Sex: Female

DRUGS (4)
  1. WELLBUTRIN XL [Suspect]
     Indication: DEPRESSION
     Dosage: 300MG PER DAY
     Route: 048
     Dates: start: 20050101
  2. WELLBUTRIN [Suspect]
     Indication: DEPRESSION
     Route: 048
     Dates: start: 19970101, end: 20050101
  3. LEVOTHYROXINE SODIUM [Concomitant]
  4. METHOTREXATE [Concomitant]

REACTIONS (6)
  - ALOPECIA [None]
  - ANAEMIA [None]
  - FATIGUE [None]
  - LYMPHOMA [None]
  - PANCYTOPENIA [None]
  - THROMBOCYTOPENIA [None]
